FAERS Safety Report 17878508 (Version 1)
Quarter: 2020Q2

REPORT INFORMATION
  Report Type: Report from Study
  Country: US (occurrence: US)
  Receive Date: 20200610
  Receipt Date: 20200610
  Transmission Date: 20200714
  Serious: Yes (Other)
  Sender: FDA-Public Use
  Company Number: US-ROCHE-2610617

PATIENT
  Age: 40 Year
  Sex: Female
  Weight: 95.34 kg

DRUGS (1)
  1. OCREVUS [Suspect]
     Active Substance: OCRELIZUMAB
     Indication: RELAPSING-REMITTING MULTIPLE SCLEROSIS
     Dosage: YES
     Route: 065

REACTIONS (10)
  - Multiple sclerosis relapse [Unknown]
  - Intentional product misuse [Unknown]
  - Gait disturbance [Recovered/Resolved with Sequelae]
  - Off label use [Unknown]
  - Asthma [Unknown]
  - Conjunctivitis [Unknown]
  - Asthenia [Recovered/Resolved]
  - Limb discomfort [Recovered/Resolved]
  - Immunodeficiency [Not Recovered/Not Resolved]
  - Hypoaesthesia [Not Recovered/Not Resolved]
